FAERS Safety Report 23301938 (Version 1)
Quarter: 2023Q4

REPORT INFORMATION
  Report Type: Report from Study
  Country: US (occurrence: US)
  Receive Date: 20231215
  Receipt Date: 20231215
  Transmission Date: 20240109
  Serious: Yes (Hospitalization)
  Sender: FDA-Public Use
  Company Number: US-HLS-202301802

PATIENT

DRUGS (1)
  1. CLOZAPINE [Suspect]
     Active Substance: CLOZAPINE
     Dosage: 225MG BID
     Route: 065
     Dates: end: 2023

REACTIONS (4)
  - Aggression [Recovered/Resolved]
  - Hostility [Recovered/Resolved]
  - Treatment noncompliance [Unknown]
  - Psychotic disorder [Unknown]
